FAERS Safety Report 7622376-4 (Version None)
Quarter: 2011Q3

REPORT INFORMATION
  Report Type: 
  Country: None (occurrence: None)
  Receive Date: 20110711
  Receipt Date: 20110623
  Transmission Date: 20111222
  Serious: Yes (Hospitalization)
  Sender: FDA-Public Use
  Company Number: DSA_47012_2011

PATIENT
  Age: 69 Year
  Sex: Male

DRUGS (14)
  1. ZOLPIDEM TARTRATE [Concomitant]
  2. DIAZEPAM [Concomitant]
  3. ALVEDON [Concomitant]
  4. INSULIN LISPRO [Concomitant]
  5. BRICANYL [Concomitant]
  6. FELODIPINE [Concomitant]
  7. BEHEPAN [Concomitant]
  8. HUMALOG [Concomitant]
  9. VENLAFAXINE HCL [Suspect]
     Indication: DEPRESSION
     Dosage: (225 MG QD ORAL)
     Route: 048
  10. OMEPRAZOLE [Concomitant]
  11. SODIUM CHLORIDE [Concomitant]
  12. BISOPROLOL FUMARATE [Concomitant]
  13. ENALAPRIL MALEATE [Suspect]
     Indication: ESSENTIAL HYPERTENSION
     Dosage: (20 MG QD ORAL)
     Route: 048
     Dates: end: 20110504
  14. ASPIRIN [Concomitant]

REACTIONS (2)
  - INAPPROPRIATE ANTIDIURETIC HORMONE SECRETION [None]
  - HYPERKALAEMIA [None]
